FAERS Safety Report 4472706-X (Version None)
Quarter: 2004Q4

REPORT INFORMATION
  Report Type: 
  Country: None (occurrence: None)
  Receive Date: 20041012
  Receipt Date: 20041012
  Transmission Date: 20050328
  Serious: Yes (Life-Threatening, Hospitalization)
  Sender: FDA-Public Use
  Company Number: None

PATIENT
  Age: 82 Year
  Sex: Female
  Weight: 74.6 kg

DRUGS (1)
  1. LISINOPRIL [Suspect]
     Dosage: UNKNOWN
     Route: 065
     Dates: start: 20031022

REACTIONS (2)
  - DYSPHAGIA [None]
  - DYSPNOEA [None]
